FAERS Safety Report 9056831 (Version 1)
Quarter: 2013Q1

REPORT INFORMATION
  Report Type: Spontaneous
  Country: US (occurrence: US)
  Receive Date: 20130201
  Receipt Date: 20130201
  Transmission Date: 20140127
  Serious: Yes (Hospitalization)
  Sender: FDA-Public Use
  Company Number: US-GLAXOSMITHKLINE-A0791374A

PATIENT
  Age: 54 Year
  Sex: Female

DRUGS (3)
  1. AVANDIA [Suspect]
     Indication: TYPE 2 DIABETES MELLITUS
     Dosage: 8MG PER DAY
     Route: 048
     Dates: start: 2001, end: 2001
  2. ACTOS [Concomitant]
     Dates: start: 2001, end: 2006
  3. ANTIHISTAMINES [Concomitant]

REACTIONS (3)
  - Angina pectoris [Unknown]
  - Cardiac failure congestive [Unknown]
  - Palpitations [Unknown]
